FAERS Safety Report 9282877 (Version 1)
Quarter: 2013Q2

REPORT INFORMATION
  Report Type: Report from Study
  Country: AU (occurrence: AU)
  Receive Date: 20130510
  Receipt Date: 20130510
  Transmission Date: 20140414
  Serious: Yes (Other)
  Sender: FDA-Public Use
  Company Number: PHHY2013AU042329

PATIENT
  Age: 81 Year
  Sex: Female
  Weight: 77 kg

DRUGS (7)
  1. ACLASTA [Suspect]
     Indication: OSTEOPOROSIS
     Dosage: 5 MG
     Route: 042
     Dates: start: 20100324
  2. ACLASTA [Suspect]
     Dosage: 5 MG
     Route: 042
     Dates: start: 20110315
  3. ACLASTA [Suspect]
     Dosage: 5 MG
     Route: 042
     Dates: start: 20120314
  4. COVERSYL [Concomitant]
     Indication: HYPERTENSION
     Dosage: 5 MG, UNK
     Route: 048
     Dates: start: 2002
  5. ZANIDIP [Concomitant]
     Indication: HYPERTENSION
     Dosage: 10 MG, UNK
     Route: 048
     Dates: start: 2002
  6. FOSAMAX [Concomitant]
     Indication: OSTEOPOROSIS
     Dosage: UNK 70/140
     Route: 048
     Dates: start: 2002, end: 2008
  7. PROTOS (PROTOPORPHYRIN DISODIUM) [Concomitant]
     Dosage: UNK UKN, UNK
     Dates: start: 2010, end: 2010

REACTIONS (2)
  - Tooth disorder [Recovering/Resolving]
  - Gingival pain [Recovering/Resolving]
